FAERS Safety Report 8165451-0 (Version None)
Quarter: 2012Q1

REPORT INFORMATION
  Report Type: 
  Country: None (occurrence: None)
  Receive Date: 20120103
  Receipt Date: 20111010
  Transmission Date: 20120608
  Serious: No
  Sender: FDA-Public Use
  Company Number: AE-2011-002214

PATIENT
  Age: 58 Year
  Sex: Female

DRUGS (5)
  1. LISINOPRIL [Concomitant]
  2. CITALOPRAM HYDROBROMIDE [Concomitant]
  3. RIBAVIRIN [Concomitant]
  4. INCIVEK [Suspect]
     Dosage: 2250 MG (750 MG, 3 IN 1 D)
     Dates: start: 20110926
  5. PSGASYS (PEGINTERFERON ALFA-2A) [Concomitant]

REACTIONS (3)
  - ASTHENIA [None]
  - NAUSEA [None]
  - RASH [None]
